FAERS Safety Report 19270853 (Version 3)
Quarter: 2021Q2

REPORT INFORMATION
  Report Type: Spontaneous
  Country: BR (occurrence: BR)
  Receive Date: 20210518
  Receipt Date: 20210621
  Transmission Date: 20210717
  Serious: Yes (Death, Hospitalization, Other)
  Sender: FDA-Public Use
  Company Number: BR-BIOMARINAP-BR-2021-136527

PATIENT
  Age: 21 Year
  Sex: Female

DRUGS (2)
  1. COVID?19 VACCINE NOS. [Suspect]
     Active Substance: COVID-19 VACCINE NOS
     Indication: IMMUNISATION
     Dosage: UNK
     Route: 065
     Dates: start: 20210507
  2. NAGLAZYME [Suspect]
     Active Substance: GALSULFASE
     Indication: MUCOPOLYSACCHARIDOSIS VI
     Dosage: 25 MILLIGRAM
     Route: 042
     Dates: start: 20070816

REACTIONS (9)
  - Embolism [Unknown]
  - Dyspnoea [Unknown]
  - Malaise [Unknown]
  - Renal disorder [Unknown]
  - Endotracheal intubation complication [Unknown]
  - COVID-19 [Fatal]
  - Cardio-respiratory arrest [Unknown]
  - Pneumonia [Unknown]
  - Pulmonary haemorrhage [Unknown]

NARRATIVE: CASE EVENT DATE: 202105
